FAERS Safety Report 4400554-5 (Version None)
Quarter: 2004Q3

REPORT INFORMATION
  Report Type: 
  Country: None (occurrence: None)
  Receive Date: 20040716
  Receipt Date: 20040716
  Transmission Date: 20050211
  Serious: No
  Sender: FDA-Public Use
  Company Number: None

PATIENT
  Sex: Male
  Weight: 78.4723 kg

DRUGS (6)
  1. CLOZAPINE [Suspect]
     Indication: SCHIZOPHRENIA, UNDIFFERENTIATED TYPE
     Dosage: 100 GM 8 PM ORAL
     Route: 048
     Dates: start: 20031207, end: 20040601
  2. CLOZAPINE [Suspect]
     Indication: SCHIZOPHRENIA, UNDIFFERENTIATED TYPE
     Dosage: 25 MG BID ORAL
     Route: 048
     Dates: start: 20031207, end: 20040601
  3. RISPERIDONE [Concomitant]
  4. BENZTROPINE MESYLATE [Concomitant]
  5. HALOPERIDOL [Concomitant]
  6. DOCUSATE [Concomitant]

REACTIONS (1)
  - NEUTROPHIL COUNT DECREASED [None]
